FAERS Safety Report 8410974-X (Version None)
Quarter: 2012Q2

REPORT INFORMATION
  Report Type: 
  Country: None (occurrence: None)
  Receive Date: 20120605
  Receipt Date: 20120531
  Transmission Date: 20120825
  Serious: Yes (Hospitalization)
  Sender: FDA-Public Use
  Company Number: US-BAYER-201032421NA

PATIENT
  Age: 22 Year
  Sex: Female
  Weight: 63 kg

DRUGS (19)
  1. POTASSIUM CHLORIDE [Concomitant]
     Dosage: UNK UNK, PRN
     Dates: start: 20091101
  2. NSAID'S [Concomitant]
     Dosage: UNK
     Dates: start: 20091101
  3. YAZ [Suspect]
     Indication: ACNE
     Dosage: 1 TAB/DAY
     Route: 048
     Dates: start: 20070101, end: 20091101
  4. MECLIZINE [Concomitant]
  5. HYDROMAX SR [Concomitant]
  6. SULFAMETHOXAZOLE [Concomitant]
  7. LEVBID [Concomitant]
     Dosage: 0.375 UNK, UNK
     Dates: start: 20091112
  8. ONDANSETRON [Concomitant]
  9. CEFPODOXIME PROXETIL [Concomitant]
  10. METRONIDAZOLE [Concomitant]
  11. YAZ [Suspect]
     Indication: MENORRHAGIA
  12. BENADRYL [Concomitant]
     Indication: PRURITUS
     Dosage: UNK
     Dates: start: 20091101
  13. FLUCONAZOLE [Concomitant]
  14. FERROUS SULFATE TAB [Concomitant]
     Indication: IRON DEFICIENCY
     Dosage: UNK
     Dates: start: 20091101
  15. XANAX [Concomitant]
  16. EXTRA STRENGTH TYLENOL [Concomitant]
     Dosage: UNK
  17. CEFPROZIL [Concomitant]
  18. YAZ [Suspect]
     Indication: PREMENSTRUAL SYNDROME
  19. CEFZIL [Concomitant]
     Dosage: UNK
     Dates: end: 20091112

REACTIONS (3)
  - PULMONARY EMBOLISM [None]
  - CHEST PAIN [None]
  - ANXIETY [None]
